FAERS Safety Report 17446144 (Version 2)
Quarter: 2020Q3

REPORT INFORMATION
  Report Type: Spontaneous
  Country: US (occurrence: US)
  Receive Date: 20200221
  Receipt Date: 20200710
  Transmission Date: 20201102
  Serious: Yes (Other)
  Sender: FDA-Public Use
  Company Number: US-SA-2020SA043967

PATIENT

DRUGS (48)
  1. HERCEPTIN [Concomitant]
     Active Substance: TRASTUZUMAB
     Dosage: 715 MQ BY INTRAVENOUS ROUTE ONCE._?
     Route: 042
     Dates: start: 20170405, end: 20170405
  2. PROCHLORPERAZINE. [Concomitant]
     Active Substance: PROCHLORPERAZINE
     Indication: BREAST CANCER FEMALE
     Dosage: UNK
     Route: 065
     Dates: start: 20161221, end: 20170228
  3. ALBUTEROL [SALBUTAMOL] [Concomitant]
     Active Substance: ALBUTEROL
     Dosage: 180 MCG (2 PUFFS) DAILY
     Dates: start: 2013
  4. ATIVAN [Concomitant]
     Active Substance: LORAZEPAM
     Indication: ANXIETY
     Dosage: UNK UNK, Q6H
     Route: 065
     Dates: start: 20161221, end: 20161221
  5. EPIPEN [Concomitant]
     Active Substance: EPINEPHRINE
     Indication: HYPERSENSITIVITY
     Dosage: ROUTE: INJECT 0.3 ML INTRAMUSCULARLY AS NEEDED FOR ALLERGIC REACTION
     Route: 030
     Dates: start: 20161221, end: 20161221
  6. PROCHLORPERAZINE. [Concomitant]
     Active Substance: PROCHLORPERAZINE
     Indication: NAUSEA
     Dosage: UNK UNK, Q8H
     Dates: start: 20161221, end: 20161221
  7. LOSARTAN. [Concomitant]
     Active Substance: LOSARTAN
     Dosage: 25 MG, HS, BED TIME
     Route: 048
     Dates: start: 2013
  8. ALBUTEROL [SALBUTAMOL] [Concomitant]
     Active Substance: ALBUTEROL
     Dosage: UNK UNK, BIDTAKE 2 PUFFS BY INHALATION 2 TIMES DAILY
     Route: 055
     Dates: start: 20170420, end: 20170425
  9. MELOXICAM. [Concomitant]
     Active Substance: MELOXICAM
     Indication: ARTHRALGIA
     Dosage: 7.5 MG, QD
     Route: 048
     Dates: end: 20170426
  10. ATIVAN [Concomitant]
     Active Substance: LORAZEPAM
     Indication: NAUSEA
     Dosage: UNK UNK, Q6H
     Route: 065
     Dates: start: 20161221, end: 20170405
  11. DIPHENHYDRAMINE. [Concomitant]
     Active Substance: DIPHENHYDRAMINE
     Indication: PREMEDICATION
     Dosage: ROUTE: 1 ML BY INTRAVENOUS ROUTE ONCE.
     Dates: start: 20161221, end: 20161221
  12. PROCHLORPERAZINE. [Concomitant]
     Active Substance: PROCHLORPERAZINE
     Indication: NAUSEA
     Dosage: ROUTE: 2 ML BY INTRAVENOUS ROUTE EVERY 6 HOURS AS NEEDED FOR NAUSEA I VOMITING
     Route: 042
     Dates: start: 20161221, end: 20161221
  13. PROCHLORPERAZINE. [Concomitant]
     Active Substance: PROCHLORPERAZINE
     Indication: VOMITING
  14. ZANTAC [Concomitant]
     Active Substance: RANITIDINE HYDROCHLORIDE
  15. TRIAMTERENE AND HYDROCHLOROTHIAZID [Concomitant]
     Active Substance: HYDROCHLOROTHIAZIDE\TRIAMTERENE
     Dosage: 1 DF, QD
     Route: 048
     Dates: end: 20170101
  16. HEPARIN [Concomitant]
     Active Substance: HEPARIN SODIUM
     Dosage: 5 ML BY INTRAVENOUS ROUTE
     Route: 042
     Dates: start: 20161221, end: 20161221
  17. TYLENOL [Concomitant]
     Active Substance: ACETAMINOPHEN
     Dosage: TAKE 3 TABLETS BY MOUTH ONCE.(ORAL)
     Route: 048
     Dates: start: 20161221, end: 20161221
  18. TYLENOL [Concomitant]
     Active Substance: ACETAMINOPHEN
     Dosage: UNK
     Dates: start: 20161221, end: 20161221
  19. NEULASTA [Concomitant]
     Active Substance: PEGFILGRASTIM
     Dosage: INJECT 0.6 ML UNDER_THE SKIN ONCE
     Route: 058
     Dates: start: 20161221, end: 20161221
  20. PEPCID [Concomitant]
     Active Substance: FAMOTIDINE
     Dosage: UNK UNK, QD
     Route: 065
     Dates: start: 20161221
  21. PARAPLATIN [Concomitant]
     Active Substance: CARBOPLATIN
     Indication: BREAST CANCER FEMALE
     Dosage: 900 MQ BY_LNTRAVENOUS ROUTE ONCE
     Route: 042
     Dates: start: 20161221, end: 20161221
  22. PARAPLATIN [Concomitant]
     Active Substance: CARBOPLATIN
     Dosage: 900 MQ BY_LNTRAVENOUS ROUTE ONCE
     Route: 042
     Dates: start: 20170405, end: 20170405
  23. PERJETA [Concomitant]
     Active Substance: PERTUZUMAB
     Dosage: 840 MG, QD
     Route: 042
     Dates: start: 20170405, end: 20170405
  24. TRAZODONE [Concomitant]
     Active Substance: TRAZODONE HYDROCHLORIDE
     Indication: INSOMNIA
     Dosage: REPORTS TAKING TWO EACH NIGHT, BECAUSE ONE PILL DOESN^T HELP
     Route: 048
     Dates: end: 20170727
  25. DEXAMETHASONE. [Concomitant]
     Active Substance: DEXAMETHASONE
     Indication: PREMEDICATION
     Dosage: TAKE 8 MG PO BID THE DAY BEFORE CHEMO. THEN STARTING DAY OF CHEMO, TAKE 8 MG QAM X 4 DAYS.
     Route: 065
     Dates: start: 20161208, end: 20161221
  26. DEXAMETHASONE. [Concomitant]
     Active Substance: DEXAMETHASONE
     Dosage: UNK
     Route: 065
     Dates: start: 20161221, end: 20170404
  27. VITAMIN D [VITAMIN D NOS] [Concomitant]
     Active Substance: VITAMIN D NOS
     Dosage: UNK
     Dates: start: 2013
  28. PEPCID [Concomitant]
     Active Substance: FAMOTIDINE
     Indication: PREMEDICATION
     Dosage: ROUTE: 2...!!JLJ.}Y INTRAVENOUS ROUTE ONCE. ? INTRAVENOUS
     Route: 042
     Dates: start: 20161221, end: 20161221
  29. DIPHENHYDRAMINE. [Concomitant]
     Active Substance: DIPHENHYDRAMINE
     Dosage: UNK UNK, QD
     Route: 065
     Dates: start: 20161221
  30. PERJETA [Concomitant]
     Active Substance: PERTUZUMAB
     Indication: BREAST CANCER FEMALE
     Dosage: 840 MG, QD
     Route: 042
     Dates: start: 20161221, end: 20161221
  31. IBUPROFEN. [Concomitant]
     Active Substance: IBUPROFEN
     Dosage: 4 DF, PRN
     Route: 065
     Dates: start: 20170228
  32. SODIUM CHLORIDE 0.9% [Concomitant]
     Active Substance: SODIUM CHLORIDE
     Dosage: 10 ML BY INTRAVENOUS ROUTE
     Route: 041
     Dates: start: 20161221, end: 20161221
  33. ATIVAN [Concomitant]
     Active Substance: LORAZEPAM
     Indication: VOMITING
  34. TAXOTERE [Suspect]
     Active Substance: DOCETAXEL
     Indication: BREAST CANCER FEMALE
     Dosage: 145 MG, Q3W
     Route: 042
     Dates: start: 20161221, end: 20161221
  35. HERCEPTIN [Concomitant]
     Active Substance: TRASTUZUMAB
     Indication: BREAST CANCER FEMALE
     Dosage: 715 MQ BY INTRAVENOUS ROUTE ONCE._?
     Route: 042
     Dates: start: 20161221, end: 20161221
  36. MULTIPLE VITAMIN [Concomitant]
     Active Substance: VITAMINS
     Dosage: UNK DF
     Route: 048
     Dates: end: 20170425
  37. OXYBUTYNIN. [Concomitant]
     Active Substance: OXYBUTYNIN CHLORIDE
     Dosage: 10 MG
     Route: 048
     Dates: start: 20170503, end: 20170727
  38. SODIUM CHLORIDE 0.9% [Concomitant]
     Active Substance: SODIUM CHLORIDE
     Indication: VEHICLE SOLUTION USE
     Dosage: ROUTE: 500 ML BY INTRAVENOUS ROUTE CONTINUOUS.
     Route: 041
     Dates: start: 20161221, end: 20161221
  39. PALONOSETRON. [Concomitant]
     Active Substance: PALONOSETRON HYDROCHLORIDE
     Indication: PREMEDICATION
     Dosage: 0.25 MG, QD
     Route: 042
     Dates: start: 20161221, end: 20161221
  40. OMNIPAQUE [Concomitant]
     Active Substance: IOHEXOL
     Dosage: UNK UNK, QD
     Dates: start: 20161229
  41. TAXOTERE [Suspect]
     Active Substance: DOCETAXEL
     Dosage: 145 MG, Q3W
     Route: 042
     Dates: start: 20170405, end: 20170405
  42. TRAZODONE [Concomitant]
     Active Substance: TRAZODONE HYDROCHLORIDE
     Indication: ANXIETY
  43. MELOXICAM. [Concomitant]
     Active Substance: MELOXICAM
     Dosage: FOR KNEE PAIN
  44. SOLU?CORTEF [Concomitant]
     Active Substance: HYDROCORTISONE SODIUM SUCCINATE
     Indication: HYPERSENSITIVITY
     Dosage: ROUTE: 1 ML BY INTRAVENOUS ROUTE AS NEEDED FOR INFUSION REACTION
     Route: 042
     Dates: start: 20161221, end: 20161221
  45. ATIVAN [Concomitant]
     Active Substance: LORAZEPAM
     Indication: NAUSEA
     Dosage: ROUTE: 1 MG BY INTRAVENOUS ROUTE EVERY 4 HOURS AS NEEDED FOR NAUSEA I VOMITING (2ND LINE)
     Route: 042
     Dates: start: 20161221, end: 20161221
  46. ADVAIR HFA [Concomitant]
     Active Substance: FLUTICASONE PROPIONATE\SALMETEROL XINAFOATE
     Indication: ASTHMA
     Dosage: UNK
     Dates: start: 2013
  47. SODIUM CHLORIDE 0.9% [Concomitant]
     Active Substance: SODIUM CHLORIDE
     Dosage: FLUSH
     Dates: start: 20191229
  48. DIPHENHYDRAMINE. [Concomitant]
     Active Substance: DIPHENHYDRAMINE
     Indication: HYPERSENSITIVITY
     Dosage: ROUTE: 1 ML BY INTRAVENOUS ROUTE AS NEEDED FOR ALLERGIC REACTION
     Route: 042
     Dates: start: 20161221, end: 20161221

REACTIONS (3)
  - Alopecia [Recovering/Resolving]
  - Psychological trauma [Unknown]
  - Emotional distress [Unknown]

NARRATIVE: CASE EVENT DATE: 2017
